FAERS Safety Report 5202747-6 (Version None)
Quarter: 2006Q4

REPORT INFORMATION
  Report Type: 
  Country: None (occurrence: None)
  Receive Date: 20061018
  Receipt Date: 20060110
  Transmission Date: 20070319
  Serious: Yes (Other)
  Sender: FDA-Public Use
  Company Number: PHEH2005US11163

PATIENT
  Age: 55 Year
  Sex: Female

DRUGS (5)
  1. ZOMETA [Suspect]
     Indication: BREAST CANCER METASTATIC
     Dosage: 4 MG, IV 1XMONTH, INTRAVENOUS
     Route: 042
     Dates: start: 20020801
  2. TAMOXIFEN CITRATE [Concomitant]
  3. FASLODEX (FLUVESTRANT) [Concomitant]
  4. ANASTROZOLE [Concomitant]
  5. CALCIUM ACETATE [Concomitant]

REACTIONS (21)
  - ASTHENIA [None]
  - BACK PAIN [None]
  - EAR DISCOMFORT [None]
  - EAR PAIN [None]
  - FATIGUE [None]
  - HYPOACUSIS [None]
  - INCREASED TENDENCY TO BRUISE [None]
  - MALIGNANT NEOPLASM PROGRESSION [None]
  - METASTASES TO BONE [None]
  - NASAL CONGESTION [None]
  - OTITIS MEDIA [None]
  - PALLOR [None]
  - PANCYTOPENIA [None]
  - PHARYNGOLARYNGEAL PAIN [None]
  - PLATELET TRANSFUSION [None]
  - PYREXIA [None]
  - RED BLOOD CELL COUNT DECREASED [None]
  - RESPIRATORY DISORDER [None]
  - THROMBOCYTOPENIA [None]
  - TUMOUR MARKER INCREASED [None]
  - TYMPANIC MEMBRANE HYPERAEMIA [None]
